FAERS Safety Report 5052004-6 (Version None)
Quarter: 2006Q3

REPORT INFORMATION
  Report Type: 
  Country: None (occurrence: None)
  Receive Date: 20060711
  Receipt Date: 20060620
  Transmission Date: 20061208
  Serious: Yes (Hospitalization)
  Sender: FDA-Public Use
  Company Number: US200606004472

PATIENT
  Age: 20 Year
  Sex: Female

DRUGS (1)
  1. ZYPREXA [Suspect]
     Indication: SCHIZOPHRENIA
     Dosage: 600 MG, OTHER, ORAL
     Route: 048

REACTIONS (12)
  - BOWEL SOUNDS ABNORMAL [None]
  - DEPRESSED LEVEL OF CONSCIOUSNESS [None]
  - EYE MOVEMENT DISORDER [None]
  - GLASGOW COMA SCALE ABNORMAL [None]
  - INTENTIONAL OVERDOSE [None]
  - MUCOUS MEMBRANE DISORDER [None]
  - PNEUMONIA ASPIRATION [None]
  - PUPILLARY LIGHT REFLEX TESTS ABNORMAL [None]
  - PYREXIA [None]
  - SINUS TACHYCARDIA [None]
  - SUICIDE ATTEMPT [None]
  - UNRESPONSIVE TO STIMULI [None]
